FAERS Safety Report 14316347 (Version 2)
Quarter: 2018Q1

REPORT INFORMATION
  Report Type: Spontaneous
  Country: US (occurrence: US)
  Receive Date: 20171222
  Receipt Date: 20180308
  Transmission Date: 20180509
  Serious: Yes (Death)
  Sender: FDA-Public Use
  Company Number: US-ENDO PHARMACEUTICALS INC-2017-008689

PATIENT
  Age: 21 Year
  Sex: Male
  Weight: 99.77 kg

DRUGS (1)
  1. PERCOCET [Suspect]
     Active Substance: ACETAMINOPHEN\OXYCODONE HYDROCHLORIDE
     Indication: PROCEDURAL PAIN
     Dosage: UNK UNK, UNKNOWN
     Route: 048
     Dates: start: 20161201, end: 20161204

REACTIONS (4)
  - Respiratory depression [Fatal]
  - Intentional product use issue [Unknown]
  - Pneumonia [Fatal]
  - Accidental overdose [Unknown]

NARRATIVE: CASE EVENT DATE: 201612
